FAERS Safety Report 16271669 (Version 2)
Quarter: 2019Q2

REPORT INFORMATION
  Report Type: Report from Study
  Country: BE (occurrence: BE)
  Receive Date: 20190506
  Receipt Date: 20190527
  Transmission Date: 20190711
  Serious: Yes (Other)
  Sender: FDA-Public Use
  Company Number: BE-ROCHE-2311263

PATIENT
  Age: 58 Year
  Sex: Female
  Weight: 63 kg

DRUGS (9)
  1. OROPERIDYS [Concomitant]
     Active Substance: DOMPERIDONE
     Dosage: MAX 2-3 DAY ONGOING
     Route: 040
  2. PARACETAMOL [Concomitant]
     Active Substance: ACETAMINOPHEN
     Dosage: ONGOING
     Route: 048
  3. OCRELIZUMAB. [Suspect]
     Active Substance: OCRELIZUMAB
     Indication: PRIMARY PROGRESSIVE MULTIPLE SCLEROSIS
     Route: 042
     Dates: start: 20190118, end: 20190201
  4. STILNOCT [Concomitant]
     Active Substance: ZOLPIDEM TARTRATE
     Indication: SLEEP DISORDER
     Dosage: ONGOING
     Route: 048
  5. FAMPYRA [Concomitant]
     Active Substance: DALFAMPRIDINE
     Dosage: ONGOING
     Route: 048
     Dates: start: 20180712
  6. REDOMEX [Concomitant]
     Active Substance: AMITRIPTYLINE HYDROCHLORIDE
     Route: 048
  7. RANITIDINE. [Concomitant]
     Active Substance: RANITIDINE
     Dosage: ONGOING
     Route: 048
  8. TAMSULOSINE [TAMSULOSIN] [Concomitant]
     Dosage: ONGOING
     Route: 048
  9. LIORESAL [Concomitant]
     Active Substance: BACLOFEN
     Dosage: ONGOING
     Route: 048

REACTIONS (1)
  - Angle closure glaucoma [Unknown]

NARRATIVE: CASE EVENT DATE: 20190325
